FAERS Safety Report 5735106-8 (Version None)
Quarter: 2008Q2

REPORT INFORMATION
  Report Type: 
  Country: None (occurrence: None)
  Receive Date: 20080512
  Receipt Date: 20080508
  Transmission Date: 20081010
  Serious: Yes (Life-Threatening)
  Sender: FDA-Public Use
  Company Number: JP-ASTRAZENECA-2008AP03555

PATIENT
  Age: 75 Year
  Sex: Female

DRUGS (8)
  1. OMEPRAL TABLETS [Suspect]
     Dosage: DOSE UNKNOWN
     Route: 048
  2. ISCOTIN [Suspect]
     Dosage: DOSE UNKNOWN
     Route: 065
  3. FRESH FROZEN PLASMA [Suspect]
     Dosage: DOSE UNKNOWN
     Route: 042
  4. GASMOTIN [Suspect]
     Dosage: DOSE UNKNOWN
     Route: 048
  5. FOSAMAC 5MG [Suspect]
     Route: 048
  6. PREDONINE [Suspect]
     Dosage: DOSE UNKNOWN
     Route: 065
  7. FUTHAN [Suspect]
     Dosage: DOSE UNKNOWN
     Route: 042
  8. TIENAM [Suspect]
     Dosage: DOSE UNKNOWN
     Route: 042

REACTIONS (1)
  - HEPATITIS FULMINANT [None]
